FAERS Safety Report 4828046-X (Version None)
Quarter: 2005Q4

REPORT INFORMATION
  Report Type: 
  Country: None (occurrence: None)
  Receive Date: 20051110
  Receipt Date: 20051028
  Transmission Date: 20060501
  Serious: Yes (Other)
  Sender: FDA-Public Use
  Company Number: 2005148305

PATIENT
  Age: 49 Year
  Sex: Male
  Weight: 90.7194 kg

DRUGS (5)
  1. CELEBREX [Suspect]
     Indication: BACK DISORDER
     Dosage: 1 IN 1 TOTAL
     Dates: start: 20031231
  2. ALL OTHER THERAPEUTIC PRODUCTS (ALL OTHER THERAPEUTIC PRODUCTS) [Suspect]
     Indication: ILL-DEFINED DISORDER
     Dates: start: 20031101
  3. VICODIN [Concomitant]
  4. ANTIINFLAMMATORY/ANTIRHEUMATIC NON-STERIODS (ANTIINFLAMMATORY/ANTIRHEU [Concomitant]
  5. ALL OTHER THERAPEUTIC PRODUCTS (ALL OTHER THERAPEUTIC PRODUCTS) [Concomitant]

REACTIONS (7)
  - ATRIAL FIBRILLATION [None]
  - CHEST PAIN [None]
  - CONDITION AGGRAVATED [None]
  - FATIGUE [None]
  - RETCHING [None]
  - TACHYCARDIA [None]
  - TREATMENT NONCOMPLIANCE [None]
